FAERS Safety Report 11812263 (Version 1)
Quarter: 2015Q4

REPORT INFORMATION
  Report Type: Spontaneous
  Country: DK (occurrence: DK)
  Receive Date: 20151208
  Receipt Date: 20151208
  Transmission Date: 20160305
  Serious: Yes (Hospitalization)
  Sender: FDA-Public Use
  Company Number: PHHY2015DK157236

PATIENT
  Age: 63 Year
  Sex: Male

DRUGS (5)
  1. METOPROLOL ORION [Concomitant]
     Active Substance: METOPROLOL
     Indication: HYPERTENSION
     Route: 065
  2. SPIRON//SPIRONOLACTONE [Suspect]
     Active Substance: SPIRONOLACTONE
     Indication: RENAL FAILURE
     Dosage: DOSAGE: 1 TABLET DAILY STRENGTH: 25 MG
     Route: 048
     Dates: end: 20150905
  3. ANCOZAN [Suspect]
     Active Substance: LOSARTAN POTASSIUM
     Indication: HYPERTENSION
     Dosage: DOSAGE: 1 TABLET DAILY, STRENGTH: 100 MG
     Route: 048
     Dates: end: 20150906
  4. ALLOPURINOL ^DAK^ [Concomitant]
     Indication: GOUT
     Route: 065
  5. FURIX [Suspect]
     Active Substance: FUROSEMIDE
     Indication: RENAL FAILURE
     Dosage: DOSAGE: 1 TABLET 2 TIMES DAILY, STRENGTH: 250 MG
     Route: 048
     Dates: end: 20150905

REACTIONS (7)
  - Dehydration [Recovered/Resolved]
  - Blood creatinine increased [None]
  - Fatigue [Recovered/Resolved]
  - Decreased appetite [Recovered/Resolved]
  - Hyponatraemia [Recovered/Resolved]
  - Hyperkalaemia [Recovered/Resolved]
  - Nausea [Recovered/Resolved]

NARRATIVE: CASE EVENT DATE: 20150702
